FAERS Safety Report 5288269-5 (Version None)
Quarter: 2007Q2

REPORT INFORMATION
  Report Type: 
  Country: None (occurrence: None)
  Receive Date: 20070403
  Receipt Date: 20070403
  Transmission Date: 20071010
  Serious: Yes (Disabling, Other)
  Sender: FDA-Public Use
  Company Number: None

PATIENT
  Sex: Male
  Weight: 108.8633 kg

DRUGS (2)
  1. MECLIZINE HCL [Suspect]
     Indication: TRAUMATIC BRAIN INJURY
     Dosage: 25MG  3 TIME PER DAY
  2. MECLIZINE HCL [Suspect]
     Indication: VERTIGO
     Dosage: 25MG  3 TIME PER DAY

REACTIONS (10)
  - BALANCE DISORDER [None]
  - HEADACHE [None]
  - HEARING IMPAIRED [None]
  - IRRITABILITY [None]
  - MEMORY IMPAIRMENT [None]
  - NECK PAIN [None]
  - NIGHTMARE [None]
  - PAIN [None]
  - PHARMACEUTICAL PRODUCT COMPLAINT [None]
  - SLEEP DISORDER [None]
